FAERS Safety Report 7795711-4 (Version None)
Quarter: 2011Q4

REPORT INFORMATION
  Report Type: 
  Country: None (occurrence: None)
  Receive Date: 20111004
  Receipt Date: 20110923
  Transmission Date: 20120403
  Serious: Yes (Hospitalization, Other)
  Sender: FDA-Public Use
  Company Number: IT-ELI_LILLY_AND_COMPANY-IT201107000677

PATIENT
  Sex: Female

DRUGS (10)
  1. FORTEO [Suspect]
     Indication: OSTEOPOROSIS
     Dosage: 20 UG, QD
     Route: 058
  2. LANSOPRAZOLE [Concomitant]
  3. ANTIHYPERTENSIVES [Concomitant]
  4. ORAL ANTIDIABETICS [Concomitant]
  5. GLIBOMET [Concomitant]
  6. PREVEX                             /00646501/ [Concomitant]
  7. SIMVASTATIN [Concomitant]
  8. CARVASIN [Concomitant]
  9. VITAMIN B NOS [Concomitant]
  10. ASPIRIN [Concomitant]

REACTIONS (1)
  - PANCREATITIS [None]
